FAERS Safety Report 6968983-3 (Version None)
Quarter: 2010Q3

REPORT INFORMATION
  Report Type: 
  Country: None (occurrence: None)
  Receive Date: 20100907
  Receipt Date: 20100826
  Transmission Date: 20110219
  Serious: Yes (Hospitalization, Other)
  Sender: FDA-Public Use
  Company Number: BR-MEDIMMUNE-MEDI-0011509

PATIENT
  Sex: Male
  Weight: 6.11 kg

DRUGS (1)
  1. SYNAGIS [Suspect]
     Dates: start: 20100619, end: 20100619

REACTIONS (2)
  - MASTOIDITIS [None]
  - MUSCULOSKELETAL STIFFNESS [None]
